FAERS Safety Report 20254352 (Version 1)
Quarter: 2021Q4

REPORT INFORMATION
  Report Type: Spontaneous
  Country: HR (occurrence: HR)
  Receive Date: 20211230
  Receipt Date: 20211230
  Transmission Date: 20220303
  Serious: Yes (Hospitalization, Other)
  Sender: FDA-Public Use
  Company Number: HR-ANXN-000012

PATIENT
  Age: 70 Year
  Sex: Male

DRUGS (1)
  1. SEVELAMER [Suspect]
     Active Substance: SEVELAMER
     Indication: Product used for unknown indication
     Dosage: 100 SEVELAMER CARBONATE PILLS
     Route: 048

REACTIONS (16)
  - Suicide attempt [Unknown]
  - Abdominal pain [Unknown]
  - Nausea [Unknown]
  - Tachycardia [Unknown]
  - Anaemia [Unknown]
  - Gastric lavage [Unknown]
  - Condition aggravated [Unknown]
  - Pyrexia [Unknown]
  - Hypotension [Unknown]
  - Intentional product misuse [Unknown]
  - Dialysis [Unknown]
  - Pulmonary congestion [Unknown]
  - Pneumomediastinum [Unknown]
  - Mediastinal disorder [Unknown]
  - Iatrogenic injury [Unknown]
  - Oesophageal perforation [Unknown]
